FAERS Safety Report 5583988-5 (Version None)
Quarter: 2008Q1

REPORT INFORMATION
  Report Type: 
  Country: None (occurrence: None)
  Receive Date: 20080103
  Receipt Date: 20080103
  Transmission Date: 20080703
  Serious: Yes (Hospitalization)
  Sender: FDA-Public Use
  Company Number: None

PATIENT
  Age: 47 Year
  Sex: Female

DRUGS (4)
  1. DOCUSATE [Suspect]
     Indication: DRUG THERAPY
  2. MULTI-VITAMIN [Suspect]
     Indication: VITAMIN SUPPLEMENTATION
  3. LORATADINE [Suspect]
     Indication: ANTIALLERGIC THERAPY
  4. NICOTINE [Suspect]
     Indication: SMOKING CESSATION THERAPY

REACTIONS (2)
  - EOSINOPHILIA [None]
  - PYREXIA [None]
